FAERS Safety Report 6705147-2 (Version None)
Quarter: 2010Q2

REPORT INFORMATION
  Report Type: 
  Country: None (occurrence: None)
  Receive Date: 20100430
  Receipt Date: 20100223
  Transmission Date: 20101027
  Serious: No
  Sender: FDA-Public Use
  Company Number: US-ASTRAZENECA-2010SE07889

PATIENT
  Sex: Female

DRUGS (1)
  1. NEXIUM [Suspect]
     Route: 048

REACTIONS (7)
  - BURNING SENSATION [None]
  - HEADACHE [None]
  - HYPERCHLORHYDRIA [None]
  - NAUSEA [None]
  - PAIN [None]
  - PYREXIA [None]
  - TACHYCARDIA [None]
